FAERS Safety Report 9105838 (Version 1)
Quarter: 2013Q1

REPORT INFORMATION
  Report Type: Not Available
  Country: ES (occurrence: ES)
  Receive Date: 20130220
  Receipt Date: 20130220
  Transmission Date: 20140127
  Serious: Yes (Hospitalization, Other)
  Sender: FDA-Public Use
  Company Number: ES-NAPPMUNDI-GBR-2013-0013143

PATIENT
  Age: 87 Year
  Sex: Male

DRUGS (1)
  1. MST CONTINUS [Suspect]
     Indication: PAIN
     Dosage: 30 MG, BID
     Route: 048
     Dates: start: 20121010, end: 20121019

REACTIONS (3)
  - Aspiration [Recovered/Resolved]
  - Depressed level of consciousness [Recovered/Resolved]
  - Pneumonia [Unknown]
